FAERS Safety Report 5047293-8 (Version None)
Quarter: 2006Q3

REPORT INFORMATION
  Report Type: 
  Country: None (occurrence: None)
  Receive Date: 20060711
  Receipt Date: 20060524
  Transmission Date: 20061208
  Serious: Yes (Death)
  Sender: FDA-Public Use
  Company Number: 2006AP02346

PATIENT
  Age: 66 Year
  Sex: Male

DRUGS (3)
  1. TENORMIN [Suspect]
     Indication: SUICIDE ATTEMPT
     Route: 048
     Dates: start: 20060521, end: 20060521
  2. DIOVAN [Suspect]
     Indication: SUICIDE ATTEMPT
     Dosage: 15 TABLETS
     Route: 048
     Dates: start: 20060521, end: 20060521
  3. CALBLOCK [Suspect]
     Indication: SUICIDE ATTEMPT
     Dosage: 15 TABLETS
     Route: 048
     Dates: start: 20060521, end: 20060521

REACTIONS (7)
  - COMPLETED SUICIDE [None]
  - DROWNING [None]
  - DRUG LEVEL ABOVE THERAPEUTIC [None]
  - GASTROINTESTINAL HAEMORRHAGE [None]
  - HYPOTENSION [None]
  - OVERDOSE [None]
  - SOMNOLENCE [None]
